FAERS Safety Report 9712521 (Version 2)
Quarter: 2013Q4

REPORT INFORMATION
  Report Type: Spontaneous
  Country: JP (occurrence: JP)
  Receive Date: 20131126
  Receipt Date: 20131205
  Transmission Date: 20140711
  Serious: No
  Sender: FDA-Public Use
  Company Number: JP-SA-2013SA122033

PATIENT
  Age: 69 Year
  Sex: Male

DRUGS (1)
  1. DELLEGRA [Suspect]
     Indication: NASAL CONGESTION
     Route: 048
     Dates: start: 20130726, end: 20130729

REACTIONS (1)
  - Dysuria [Recovered/Resolved]
